FAERS Safety Report 6402676-6 (Version None)
Quarter: 2009Q4

REPORT INFORMATION
  Report Type: 
  Country: None (occurrence: None)
  Receive Date: 20091009
  Receipt Date: 20090930
  Transmission Date: 20100525
  Serious: Yes (Disabling)
  Sender: FDA-Public Use
  Company Number: ADR34202009

PATIENT
  Age: 68 Year
  Sex: Male

DRUGS (11)
  1. CIPROFLOXACIN [Suspect]
     Indication: PROSTATITIS
     Dosage: 1 G, ORAL
     Route: 048
     Dates: start: 20060901, end: 20061001
  2. CIPROFLOXACIN [Suspect]
     Indication: PROSTATITIS
     Dosage: 1 G, ORAL
     Route: 048
     Dates: start: 20050110
  3. CIPROFLOXACIN [Suspect]
     Indication: PROSTATITIS
     Dosage: 1 G, ORAL
     Route: 048
     Dates: start: 20050926
  4. CIPROFLOXACIN [Suspect]
     Indication: PROSTATITIS
     Dosage: 1 G, ORAL
     Route: 048
     Dates: start: 20050928
  5. CIPROFLOXACIN [Suspect]
     Indication: PROSTATITIS
     Dosage: 1 G, ORAL
     Route: 048
     Dates: start: 20051005
  6. CIPROFLOXACIN [Suspect]
     Indication: PROSTATITIS
     Dosage: 1 G, ORAL
     Route: 048
     Dates: start: 20060203
  7. CIPROFLOXACIN [Suspect]
     Indication: PROSTATITIS
     Dosage: 1 G, ORAL
     Route: 048
     Dates: start: 20060207
  8. ATORVASTATIN [Concomitant]
  9. SOLPADOL (CODEINE, DIPHENHYLPYRALINE, ISOPROPAMIDE, PARACETAMOL, PHENY [Concomitant]
  10. TEMAZEPAM [Concomitant]
  11. TRIMETHOPRIM [Concomitant]

REACTIONS (3)
  - INTERCOSTAL NEURALGIA [None]
  - TINNITUS [None]
  - TREMOR [None]
